FAERS Safety Report 6753242-4 (Version None)
Quarter: 2010Q2

REPORT INFORMATION
  Report Type: 
  Country: None (occurrence: None)
  Receive Date: 20100603
  Receipt Date: 20100526
  Transmission Date: 20101027
  Serious: Yes (Other)
  Sender: FDA-Public Use
  Company Number: PHHO2010TR06148

PATIENT
  Sex: Female
  Weight: 66.7 kg

DRUGS (6)
  1. EXELON [Suspect]
     Indication: DEMENTIA
     Dosage: 16 MG
     Route: 048
     Dates: start: 20081103
  2. STALEVO 100 [Concomitant]
  3. CABASER [Concomitant]
  4. DEFLAN [Concomitant]
  5. CORASPIN [Concomitant]
  6. LOMUSOL [Concomitant]

REACTIONS (1)
  - PNEUMONIA [None]
